FAERS Safety Report 26092287 (Version 1)
Quarter: 2025Q4

REPORT INFORMATION
  Report Type: Spontaneous
  Country: US (occurrence: None)
  Receive Date: 20251126
  Receipt Date: 20251126
  Transmission Date: 20260117
  Serious: Yes (Other)
  Sender: FDA-CTU
  Company Number: None

PATIENT
  Sex: Female

DRUGS (11)
  1. LENALIDOMIDE [Suspect]
     Active Substance: LENALIDOMIDE
     Dosage: FREQUENCY : DAILY;?
     Route: 048
     Dates: start: 20250830
  2. BYSTOLIC TAB 10MG [Concomitant]
  3. DARZALEX [Concomitant]
     Active Substance: DARATUMUMAB
  4. DEXAMETHASON TAB 2MG [Concomitant]
  5. ELIOUIS TAB 2.5MG [Concomitant]
  6. FISH OIL CAP 1000MG [Concomitant]
  7. IJARDIANCE TAB 10MG [Concomitant]
  8. LEVOTHYROXIN CAP 75MCG [Concomitant]
  9. SIMVASTATIN [Concomitant]
     Active Substance: SIMVASTATIN
  10. TORSEMIDE TAB 20MG [Concomitant]
  11. VALACYCLOVIR TAB 500MG [Concomitant]

REACTIONS (4)
  - Fall [None]
  - Hip fracture [None]
  - Catheterisation cardiac [None]
  - Therapy interrupted [None]
